FAERS Safety Report 4696604-1 (Version None)
Quarter: 2005Q2

REPORT INFORMATION
  Report Type: 
  Country: None (occurrence: None)
  Receive Date: 20050620
  Receipt Date: 20041129
  Transmission Date: 20051028
  Serious: Yes (Other)
  Sender: FDA-Public Use
  Company Number: 200419166US

PATIENT
  Age: 75 Year
  Sex: Male
  Weight: 104.5 kg

DRUGS (5)
  1. LANTUS [Suspect]
     Indication: DIABETES MELLITUS
     Dosage: 45 U HS
  2. LANTUS [Suspect]
     Indication: DIABETES MELLITUS
     Dosage: 40 U HS
  3. NOVOLOG [Concomitant]
  4. SIMVASTATIN [Concomitant]
  5. SYNTHROID [Concomitant]

REACTIONS (2)
  - HYPERGLYCAEMIA [None]
  - HYPOGLYCAEMIC SEIZURE [None]
